FAERS Safety Report 24324002 (Version 1)
Quarter: 2024Q3

REPORT INFORMATION
  Report Type: Spontaneous
  Country: FR (occurrence: FR)
  Receive Date: 20240916
  Receipt Date: 20240916
  Transmission Date: 20241017
  Serious: No
  Sender: PFIZER
  Company Number: FR-PFIZER INC-PV202400120511

PATIENT
  Age: 9 Year
  Sex: Female

DRUGS (1)
  1. NGENLA [Suspect]
     Active Substance: SOMATROGON-GHLA
     Dosage: 60 MG
     Route: 058

REACTIONS (7)
  - Anxiety [Recovering/Resolving]
  - Crying [Recovering/Resolving]
  - Screaming [Recovering/Resolving]
  - Tension [Recovering/Resolving]
  - Scratch [Recovering/Resolving]
  - Injection site pain [Recovering/Resolving]
  - Needle issue [Recovering/Resolving]

NARRATIVE: CASE EVENT DATE: 20240912
